FAERS Safety Report 4779768-0 (Version None)
Quarter: 2005Q3

REPORT INFORMATION
  Report Type: 
  Country: None (occurrence: None)
  Receive Date: 20050927
  Receipt Date: 20050920
  Transmission Date: 20060218
  Serious: Yes (Other)
  Sender: FDA-Public Use
  Company Number: 2005SE05307

PATIENT
  Sex: Female

DRUGS (4)
  1. METOPROLOL SUCCINATE [Suspect]
     Route: 048
  2. INSULATARD NPH HUMAN [Concomitant]
     Indication: DIABETES MELLITUS
  3. PLENDIL [Concomitant]
  4. COZAAR [Concomitant]

REACTIONS (6)
  - AGGRESSION [None]
  - ANXIETY [None]
  - CLAVICLE FRACTURE [None]
  - CONTUSION [None]
  - FALL [None]
  - NIGHTMARE [None]
